FAERS Safety Report 17401466 (Version 1)
Quarter: 2020Q1

REPORT INFORMATION
  Report Type: Spontaneous
  Country: CA (occurrence: CA)
  Receive Date: 20200211
  Receipt Date: 20200211
  Transmission Date: 20200409
  Serious: Yes (Other)
  Sender: FDA-Public Use
  Company Number: NVSC2020CA034407

PATIENT
  Age: 68 Year
  Sex: Male
  Weight: 85 kg

DRUGS (1)
  1. TELMISARTAN. [Suspect]
     Active Substance: TELMISARTAN
     Indication: HYPERTENSION
     Dosage: 40 MG, QD
     Route: 048

REACTIONS (2)
  - Peripheral swelling [Recovered/Resolved]
  - Headache [Recovered/Resolved]
